FAERS Safety Report 15354231 (Version 1)
Quarter: 2018Q3

REPORT INFORMATION
  Report Type: Spontaneous
  Country: US (occurrence: US)
  Receive Date: 20180906
  Receipt Date: 20180906
  Transmission Date: 20181010
  Serious: No
  Sender: FDA-Public Use
  Company Number: US-UNICHEM PHARMACEUTICALS (USA) INC-UCM201801-000004

PATIENT
  Age: 72 Year
  Sex: Male
  Weight: 88.98 kg

DRUGS (1)
  1. BISOPROLOL FUAMRATE 5 MG TABLET [Suspect]
     Active Substance: BISOPROLOL FUMARATE
     Indication: HYPERTENSION
     Dosage: ONE TABLET OF 5 MG PER DAY
     Route: 048

REACTIONS (1)
  - Rash [Recovered/Resolved]
